FAERS Safety Report 16583743 (Version 1)
Quarter: 2019Q3

REPORT INFORMATION
  Report Type: Spontaneous
  Country: US (occurrence: US)
  Receive Date: 20190717
  Receipt Date: 20190717
  Transmission Date: 20191004
  Serious: No
  Sender: FDA-Public Use
  Company Number: US-PFIZER INC-2019303450

PATIENT
  Sex: Female

DRUGS (2)
  1. LYRICA [Suspect]
     Active Substance: PREGABALIN
     Dosage: 1 DF, 2X/DAY
     Route: 048
  2. LYRICA [Suspect]
     Active Substance: PREGABALIN
     Dosage: 1 DF, DAILY [1 PILL A DAY FOR THE LAST 3 DAYS]

REACTIONS (6)
  - Agitation [Unknown]
  - Stress [Unknown]
  - Visual impairment [Unknown]
  - Intentional product misuse [Unknown]
  - Anxiety [Unknown]
  - Feeling hot [Unknown]
